FAERS Safety Report 9137797 (Version 1)
Quarter: 2013Q1

REPORT INFORMATION
  Report Type: Spontaneous
  Country: US (occurrence: US)
  Receive Date: 20130304
  Receipt Date: 20130304
  Transmission Date: 20140127
  Serious: No
  Sender: FDA-Public Use
  Company Number: US-ABBOTT-13P-163-1046627-00

PATIENT
  Sex: Male
  Weight: 90.8 kg

DRUGS (10)
  1. ANDROGEL 1% [Suspect]
     Indication: ERECTILE DYSFUNCTION
     Dosage: 1 5GM PACKET
     Dates: start: 2003
  2. ANDROGEL 1% [Suspect]
     Dosage: TWO 5GM PACKETS PER DAY
  3. ANDROGEL 1% [Suspect]
     Dosage: ONE 5GM PACKET PER DAY
  4. TRIAMTERENE [Concomitant]
     Indication: DIURETIC THERAPY
  5. CLONAZEPAM [Concomitant]
     Indication: VERTIGO
  6. GABAPENTIN [Concomitant]
     Indication: NEURALGIA
  7. HUMALOG [Concomitant]
     Indication: DIABETES MELLITUS
  8. CRESTOR [Concomitant]
     Indication: BLOOD CHOLESTEROL INCREASED
  9. LISINOPRIL [Concomitant]
     Indication: HYPERTENSION
  10. DOXAZOSIN [Concomitant]
     Indication: POLLAKIURIA

REACTIONS (3)
  - Drug effect decreased [Not Recovered/Not Resolved]
  - Blood testosterone abnormal [Not Recovered/Not Resolved]
  - Off label use [Unknown]
